FAERS Safety Report 9684129 (Version 1)
Quarter: 2013Q4

REPORT INFORMATION
  Report Type: Spontaneous
  Country: US (occurrence: None)
  Receive Date: 20131111
  Receipt Date: 20131111
  Transmission Date: 20140711
  Serious: Yes (Other)
  Sender: FDA-Public Use
  Company Number: None

PATIENT
  Age: 7 Year
  Sex: Male
  Weight: 23.13 kg

DRUGS (1)
  1. CHILDREN^S BENADRYL [Suspect]
     Indication: HYPERSENSITIVITY

REACTIONS (2)
  - Poisoning [None]
  - Milk allergy [None]
